FAERS Safety Report 25188516 (Version 1)
Quarter: 2025Q2

REPORT INFORMATION
  Report Type: Report from Study
  Country: US (occurrence: US)
  Receive Date: 20250411
  Receipt Date: 20250411
  Transmission Date: 20250716
  Serious: Yes (Other)
  Sender: ABBVIE
  Company Number: US-ABBVIE-6213683

PATIENT
  Sex: Female

DRUGS (1)
  1. SKYRIZI [Suspect]
     Active Substance: RISANKIZUMAB-RZAA
     Indication: Psoriasis
     Route: 058
     Dates: start: 20240523

REACTIONS (4)
  - Neoplasm [Not Recovered/Not Resolved]
  - Nasopharyngitis [Recovering/Resolving]
  - Hyperkeratosis [Not Recovered/Not Resolved]
  - Skin disorder [Not Recovered/Not Resolved]
